FAERS Safety Report 8842955 (Version 1)
Quarter: 2012Q4

REPORT INFORMATION
  Report Type: 
  Country: CN (occurrence: CN)
  Receive Date: 20121016
  Receipt Date: 20121016
  Transmission Date: 20130627
  Serious: Yes (Other)
  Sender: FDA-Public Use
  Company Number: CN-BAYER-2012-105957

PATIENT
  Age: 69 Year
  Sex: Male
  Weight: 70 kg

DRUGS (1)
  1. CIPROFLOXACIN [Suspect]
     Indication: INFECTION
     Dosage: 0.4 g, BID
     Route: 041
     Dates: start: 20110926, end: 20111006

REACTIONS (3)
  - Schizophreniform disorder [Recovering/Resolving]
  - Mental disorder [Recovering/Resolving]
  - Agitation [None]
